FAERS Safety Report 18627277 (Version 1)
Quarter: 2020Q4

REPORT INFORMATION
  Report Type: Spontaneous
  Country: US (occurrence: US)
  Receive Date: 20201217
  Receipt Date: 20201217
  Transmission Date: 20210114
  Serious: Yes (Hospitalization, Other)
  Sender: FDA-Public Use
  Company Number: US-GRANULES-US-2020GRASPO00080

PATIENT
  Age: 71 Year
  Sex: Male

DRUGS (1)
  1. METFORMIN HCL [Suspect]
     Active Substance: METFORMIN HYDROCHLORIDE
     Indication: TYPE 2 DIABETES MELLITUS
     Route: 048
     Dates: start: 20191122, end: 20201016

REACTIONS (8)
  - Rash [Not Recovered/Not Resolved]
  - Myocardial infarction [Recovered/Resolved]
  - Stevens-Johnson syndrome [Unknown]
  - Dyspepsia [Recovered/Resolved]
  - Muscle spasms [Recovered/Resolved]
  - Dementia [Recovered/Resolved]
  - Chromaturia [Recovered/Resolved]
  - Prostatic disorder [Recovered/Resolved]

NARRATIVE: CASE EVENT DATE: 202001
